FAERS Safety Report 21760210 (Version 1)
Quarter: 2022Q4

REPORT INFORMATION
  Report Type: Spontaneous
  Country: US (occurrence: US)
  Receive Date: 20221221
  Receipt Date: 20221221
  Transmission Date: 20230112
  Serious: No
  Sender: FDA-Public Use
  Company Number: US-TEVA-2022-US-2834748

PATIENT
  Sex: Female

DRUGS (1)
  1. COPAXONE [Suspect]
     Active Substance: GLATIRAMER ACETATE
     Indication: Product used for unknown indication
     Dosage: 40 MG
     Route: 065

REACTIONS (6)
  - Injection site mass [Unknown]
  - Pruritus [Unknown]
  - Injection site pruritus [Unknown]
  - Paraesthesia [Unknown]
  - Pain [Unknown]
  - Dry skin [Unknown]
